FAERS Safety Report 9909951 (Version 1)
Quarter: 2014Q1

REPORT INFORMATION
  Report Type: Spontaneous
  Country: US (occurrence: None)
  Receive Date: 20140212
  Receipt Date: 20140212
  Transmission Date: 20141002
  Serious: Yes (Death)
  Sender: FDA-Public Use
  Company Number: 2014020120

PATIENT
  Age: 61 Year
  Sex: Female

DRUGS (9)
  1. MEPROBAMATE [Suspect]
  2. SALICYLATE [Suspect]
  3. METOPROLOL [Suspect]
  4. PROPOXYPHENE [Suspect]
  5. CLONAZEPAM [Suspect]
  6. DIAZEPAM [Suspect]
  7. GABAPENTIN [Suspect]
  8. ACETAMINOPHEN [Suspect]
  9. MEPROBAMATE [Suspect]

REACTIONS (4)
  - Completed suicide [None]
  - Exposure via ingestion [None]
  - Cardiac arrest [None]
  - Respiratory arrest [None]
